FAERS Safety Report 8479488-5 (Version None)
Quarter: 2012Q2

REPORT INFORMATION
  Report Type: 
  Country: None (occurrence: None)
  Receive Date: 20120629
  Receipt Date: 20120616
  Transmission Date: 20120825
  Serious: Yes (Hospitalization, Other)
  Sender: FDA-Public Use
  Company Number: US-ACTELION-A-NJ2012-62462

PATIENT

DRUGS (2)
  1. TRACLEER [Suspect]
     Indication: PULMONARY ARTERIAL HYPERTENSION
     Dosage: UNK
     Route: 048
     Dates: start: 20111206
  2. ASPIRIN [Concomitant]

REACTIONS (13)
  - FALL [None]
  - SUICIDAL IDEATION [None]
  - HYPOTENSION [None]
  - BLOOD GLUCOSE DECREASED [None]
  - DIZZINESS [None]
  - WEIGHT INCREASED [None]
  - ABDOMINAL DISTENSION [None]
  - MUSCULAR WEAKNESS [None]
  - FATIGUE [None]
  - BLOOD POTASSIUM DECREASED [None]
  - SOMNOLENCE [None]
  - CARDIAC FAILURE CONGESTIVE [None]
  - OEDEMA PERIPHERAL [None]
